FAERS Safety Report 7982369-4 (Version None)
Quarter: 2011Q4

REPORT INFORMATION
  Report Type: 
  Country: None (occurrence: None)
  Receive Date: 20111215
  Receipt Date: 20111206
  Transmission Date: 20120403
  Serious: Yes (Hospitalization)
  Sender: FDA-Public Use
  Company Number: PHEH2011US05626

PATIENT
  Sex: Male
  Weight: 76.7 kg

DRUGS (7)
  1. EXJADE [Suspect]
     Dosage: 1000 MG, QD
     Route: 048
  2. LISINOPRIL [Concomitant]
     Indication: HYPERTENSION
  3. HYDROXYUREA [Concomitant]
     Indication: SICKLE CELL ANAEMIA
     Dosage: 1500 MG/ 2000 MG EVERY OTHER DAY
     Route: 048
     Dates: start: 20101022
  4. EXJADE [Suspect]
     Indication: IRON OVERLOAD
     Dosage: 1000 MG, QD
     Route: 048
     Dates: start: 20100202, end: 20110523
  5. EPOGEN [Concomitant]
     Dosage: 25000 U, QW
     Route: 058
     Dates: start: 20110307
  6. IBUPROFEN [Concomitant]
     Dosage: 600 MG, PRN
     Route: 048
     Dates: end: 20110523
  7. LISINOPRIL [Concomitant]
     Indication: PROTEINURIA
     Dosage: 10 MG, UNK
     Route: 048
     Dates: start: 20100715, end: 20110523

REACTIONS (6)
  - DEVICE COMPONENT ISSUE [None]
  - HYPOXIA [None]
  - PAIN [None]
  - STAPHYLOCOCCAL INFECTION [None]
  - HYPOTENSION [None]
  - RENAL FAILURE ACUTE [None]
